FAERS Safety Report 25709012 (Version 2)
Quarter: 2025Q4

REPORT INFORMATION
  Report Type: Spontaneous
  Country: US (occurrence: US)
  Receive Date: 20250821
  Receipt Date: 20251003
  Transmission Date: 20260118
  Serious: No
  Sender: GLAXOSMITHKLINE
  Company Number: US-GSK-US2025AMR096018

PATIENT
  Age: 46 Year
  Sex: Female

DRUGS (2)
  1. BENLYSTA [Suspect]
     Active Substance: BELIMUMAB
     Indication: Lupus nephritis
     Dosage: 200 MG, WE
     Dates: start: 202507
  2. DUPIXENT [Concomitant]
     Active Substance: DUPILUMAB
     Indication: Lupus nephritis
     Dosage: UNK, PEN

REACTIONS (5)
  - Injection site erythema [Unknown]
  - Eczema [Unknown]
  - Dry skin [Unknown]
  - Rash erythematous [Unknown]
  - Swelling [Unknown]

NARRATIVE: CASE EVENT DATE: 20250722
